FAERS Safety Report 5745671-2 (Version None)
Quarter: 2008Q2

REPORT INFORMATION
  Report Type: 
  Country: None (occurrence: None)
  Receive Date: 20080521
  Receipt Date: 20080519
  Transmission Date: 20081010
  Serious: Yes (Other)
  Sender: FDA-Public Use
  Company Number: US-BOEHRINGER INGELHEIM GMBH, GERMANY-2008-BP-07784RO

PATIENT
  Age: 57 Year
  Sex: Male

DRUGS (8)
  1. PREDNISONE TAB [Suspect]
     Indication: IMMUNOSUPPRESSANT DRUG THERAPY
  2. MYCOPHENOLATE MOFETIL [Suspect]
     Indication: IMMUNOSUPPRESSANT DRUG THERAPY
  3. NEORAL [Suspect]
     Indication: IMMUNOSUPPRESSANT DRUG THERAPY
  4. VALGANCICLOVIR HCL [Suspect]
     Indication: ANTIVIRAL PROPHYLAXIS
  5. TRIMETHOPRIM + SULFAMETHOXAZOLE [Suspect]
     Indication: TOXOPLASMOSIS PROPHYLAXIS
  6. ANTIMICROBIAL THERAPY [Concomitant]
     Indication: PSEUDOMONAS INFECTION
  7. VORICONAZOLE [Concomitant]
     Indication: SKIN INFECTION
     Route: 048
  8. TERBINAFINE HCL [Concomitant]
     Indication: SKIN INFECTION
     Route: 061

REACTIONS (7)
  - CHILLS [None]
  - GANGRENE [None]
  - PSEUDOMONAS INFECTION [None]
  - PURULENT DISCHARGE [None]
  - PYREXIA [None]
  - RASH [None]
  - SKIN INFECTION [None]
